FAERS Safety Report 6275620-2 (Version None)
Quarter: 2009Q3

REPORT INFORMATION
  Report Type: 
  Country: None (occurrence: None)
  Receive Date: 20090721
  Receipt Date: 20090710
  Transmission Date: 20100115
  Serious: Yes (Hospitalization)
  Sender: FDA-Public Use
  Company Number: FR-PFIZER INC-2009238746

PATIENT
  Age: 73 Year

DRUGS (5)
  1. TAHOR [Suspect]
     Indication: CORONARY ARTERY STENOSIS
     Dosage: UNK
     Dates: start: 20090529
  2. FORTZAAR [Suspect]
     Dosage: UNK
     Dates: end: 20090101
  3. DILTIAZEM HCL [Concomitant]
  4. PLAVIX [Concomitant]
     Dosage: UNK
  5. KARDEGIC [Concomitant]

REACTIONS (2)
  - ARTHRITIS [None]
  - ASTHENIA [None]
